FAERS Safety Report 7760467-8 (Version None)
Quarter: 2011Q3

REPORT INFORMATION
  Report Type: 
  Country: None (occurrence: None)
  Receive Date: 20110919
  Receipt Date: 20110912
  Transmission Date: 20111222
  Serious: Yes (Hospitalization)
  Sender: FDA-Public Use
  Company Number: US-B.I. PHARMACEUTICALS,INC./RIDGEFIELD-2011-BP-19291BP

PATIENT
  Age: 70 Year
  Sex: Female
  Weight: 73.03 kg

DRUGS (16)
  1. ASPIRIN [Concomitant]
     Dosage: 81 MG
     Route: 048
  2. PRADAXA [Suspect]
     Indication: ATRIAL FIBRILLATION
     Dosage: 300 MG
     Route: 048
     Dates: start: 20110608
  3. CALCIUM CARBONATE [Concomitant]
  4. VIT C [Concomitant]
  5. FOLIC ACID [Concomitant]
  6. PREDNISONE [Concomitant]
  7. IMDUR [Concomitant]
     Dosage: 30 MG
  8. LOPRESSOR [Concomitant]
     Dosage: 50 MG
  9. FLAX SEED OIL [Concomitant]
  10. RANITIDINE [Concomitant]
     Dosage: 300 MG
  11. AMIODARONE HCL [Concomitant]
     Dosage: 400 MG
  12. ZESTORETIC [Concomitant]
  13. M.V.I. [Concomitant]
  14. POTASSIUM [Concomitant]
     Dosage: 10 MEQ
  15. SULINDAC [Concomitant]
  16. SULFASALAZINE [Concomitant]

REACTIONS (1)
  - CEREBRAL ISCHAEMIA [None]
